FAERS Safety Report 6703410-2 (Version None)
Quarter: 2010Q2

REPORT INFORMATION
  Report Type: 
  Country: None (occurrence: None)
  Receive Date: 20100430
  Receipt Date: 20100422
  Transmission Date: 20101027
  Serious: Yes (Hospitalization)
  Sender: FDA-Public Use
  Company Number: DE-BRACCO-BRO-012183

PATIENT
  Age: 70 Year
  Sex: Female
  Weight: 79 kg

DRUGS (9)
  1. GADOTERIDOL [Suspect]
     Indication: ABDOMINAL DISCOMFORT
     Route: 042
  2. GADOTERIDOL [Suspect]
     Indication: HEPATIC ENZYME INCREASED
     Route: 042
  3. GADOTERIDOL [Suspect]
     Indication: MAGNETIC RESONANCE CHOLANGIOPANCREATOGRAPHY
     Route: 042
  4. HYDROCHLOROTHIAZIDE [Concomitant]
     Route: 065
  5. TRIAMTERENE [Concomitant]
     Route: 048
  6. METFORMIN [Concomitant]
     Route: 065
  7. ATORVASTATIN [Concomitant]
     Route: 065
  8. ACETYLSALICYLIC ACID [Concomitant]
     Route: 065
  9. METOPROLOL TARTRATE [Concomitant]
     Route: 065

REACTIONS (1)
  - RENAL FAILURE ACUTE [None]
